FAERS Safety Report 7458686-3 (Version None)
Quarter: 2011Q2

REPORT INFORMATION
  Report Type: 
  Country: None (occurrence: None)
  Receive Date: 20110504
  Receipt Date: 20110420
  Transmission Date: 20111010
  Serious: Yes (Hospitalization)
  Sender: FDA-Public Use
  Company Number: CA-JNJFOC-20110410274

PATIENT
  Sex: Male
  Weight: 71 kg

DRUGS (3)
  1. REMICADE [Suspect]
     Indication: CROHN'S DISEASE
     Route: 042
  2. TEGRETOL [Concomitant]
  3. CHOLESTYRAMINE [Concomitant]

REACTIONS (6)
  - PROTEIN TOTAL DECREASED [None]
  - MUSCLE RUPTURE [None]
  - INTESTINAL DILATATION [None]
  - INTESTINAL STENOSIS [None]
  - OEDEMA PERIPHERAL [None]
  - HAEMOGLOBIN DECREASED [None]
